FAERS Safety Report 18452136 (Version 1)
Quarter: 2020Q4

REPORT INFORMATION
  Report Type: Spontaneous
  Country: US (occurrence: US)
  Receive Date: 20201102
  Receipt Date: 20201102
  Transmission Date: 20210114
  Serious: Yes (Life-Threatening, Hospitalization)
  Sender: FDA-Public Use
  Company Number: US-MYLANLABS-2020M1090704

PATIENT
  Age: 51 Year
  Sex: Female

DRUGS (1)
  1. CYCLOBENZAPRINE. [Suspect]
     Active Substance: CYCLOBENZAPRINE
     Indication: PRODUCT USED FOR UNKNOWN INDICATION
     Dosage: UNK
     Route: 048

REACTIONS (14)
  - Multiple organ dysfunction syndrome [Unknown]
  - Liver injury [Recovered/Resolved]
  - Respiratory failure [Unknown]
  - Tachycardia [Unknown]
  - Intentional overdose [Unknown]
  - Hypotension [Unknown]
  - Metabolic encephalopathy [Unknown]
  - Suicide attempt [Unknown]
  - Unresponsive to stimuli [Unknown]
  - Metabolic acidosis [Unknown]
  - Shock [Unknown]
  - Acute kidney injury [Recovered/Resolved]
  - Rhabdomyolysis [Unknown]
  - Electrocardiogram QRS complex prolonged [Recovered/Resolved]
